FAERS Safety Report 20050707 (Version 1)
Quarter: 2021Q4

REPORT INFORMATION
  Report Type: Spontaneous
  Country: CA (occurrence: CA)
  Receive Date: 20211109
  Receipt Date: 20211109
  Transmission Date: 20220303
  Serious: Yes (Other)
  Sender: FDA-Public Use
  Company Number: CA-ABBVIE-21K-028-4148898-00

PATIENT
  Sex: Female
  Weight: 82 kg

DRUGS (11)
  1. HUMIRA [Suspect]
     Active Substance: ADALIMUMAB
     Indication: Product used for unknown indication
     Route: 058
  2. XELJANZ [Suspect]
     Active Substance: TOFACITINIB CITRATE
     Indication: Rheumatoid arthritis
     Route: 048
     Dates: start: 20170608, end: 20170619
  3. XELJANZ [Suspect]
     Active Substance: TOFACITINIB CITRATE
     Route: 048
     Dates: start: 20170704, end: 2017
  4. XELJANZ [Suspect]
     Active Substance: TOFACITINIB CITRATE
     Route: 048
     Dates: start: 20170711, end: 2017
  5. XELJANZ [Suspect]
     Active Substance: TOFACITINIB CITRATE
     Route: 048
     Dates: start: 20170608, end: 201805
  6. XELJANZ [Suspect]
     Active Substance: TOFACITINIB CITRATE
     Route: 048
     Dates: start: 2018, end: 202102
  7. XELJANZ [Suspect]
     Active Substance: TOFACITINIB CITRATE
     Route: 048
     Dates: start: 202102, end: 202108
  8. XELJANZ [Suspect]
     Active Substance: TOFACITINIB CITRATE
     Route: 048
     Dates: start: 2021
  9. NAPROXEN [Concomitant]
     Active Substance: NAPROXEN
     Indication: Product used for unknown indication
  10. PERINDOPRIL [Concomitant]
     Active Substance: PERINDOPRIL
     Indication: Blood pressure measurement
  11. BENADRYL [Concomitant]
     Active Substance: DIPHENHYDRAMINE HYDROCHLORIDE
     Indication: Hypersensitivity
     Dates: start: 2018

REACTIONS (41)
  - Renal cell carcinoma [Unknown]
  - Condition aggravated [Unknown]
  - Back pain [Not Recovered/Not Resolved]
  - Cystitis [Unknown]
  - Erythema [Recovered/Resolved]
  - Erythema [Unknown]
  - Swelling face [Not Recovered/Not Resolved]
  - Swelling [Not Recovered/Not Resolved]
  - Food allergy [Unknown]
  - Pain in extremity [Not Recovered/Not Resolved]
  - Flushing [Unknown]
  - Hypersensitivity [Unknown]
  - Influenza [Not Recovered/Not Resolved]
  - Insomnia [Unknown]
  - Illness [Unknown]
  - Immune system disorder [Not Recovered/Not Resolved]
  - Movement disorder [Not Recovered/Not Resolved]
  - Oropharyngeal pain [Unknown]
  - Pain in extremity [Not Recovered/Not Resolved]
  - Pharyngeal swelling [Unknown]
  - Pruritus [Unknown]
  - Road traffic accident [Unknown]
  - Throat irritation [Not Recovered/Not Resolved]
  - Throat tightness [Not Recovered/Not Resolved]
  - Temperature intolerance [Unknown]
  - Urinary incontinence [Unknown]
  - Rash [Not Recovered/Not Resolved]
  - Pain [Unknown]
  - Musculoskeletal stiffness [Unknown]
  - Joint swelling [Unknown]
  - Arthralgia [Unknown]
  - Neoplasm malignant [Unknown]
  - Therapeutic product effect incomplete [Unknown]
  - Renal neoplasm [Unknown]
  - Incorrect dose administered [Unknown]
  - Fatigue [Unknown]
  - Mobility decreased [Unknown]
  - Musculoskeletal stiffness [Unknown]
  - Pain [Unknown]
  - Temperature intolerance [Not Recovered/Not Resolved]
  - Rash [Not Recovered/Not Resolved]

NARRATIVE: CASE EVENT DATE: 20170101
